FAERS Safety Report 18734135 (Version 1)
Quarter: 2021Q1

REPORT INFORMATION
  Report Type: Report from Study
  Country: US (occurrence: US)
  Receive Date: 20210113
  Receipt Date: 20210113
  Transmission Date: 20210419
  Serious: Yes (Other)
  Sender: FDA-Public Use
  Company Number: US-SUN PHARMACEUTICAL INDUSTRIES LTD-2020R1-275177

PATIENT
  Age: 50 Year
  Sex: Female

DRUGS (1)
  1. LOPERAMIDE [Suspect]
     Active Substance: LOPERAMIDE
     Indication: WITHDRAWAL SYNDROME
     Dosage: UNK
     Route: 065

REACTIONS (4)
  - Unresponsive to stimuli [Unknown]
  - Overdose [Unknown]
  - Ventricular tachycardia [Unknown]
  - Syncope [Unknown]
